FAERS Safety Report 25384765 (Version 1)
Quarter: 2025Q2

REPORT INFORMATION
  Report Type: Spontaneous
  Country: US (occurrence: None)
  Receive Date: 20250530
  Receipt Date: 20250530
  Transmission Date: 20250717
  Serious: No
  Sender: FDA-CTU
  Company Number: None

PATIENT
  Sex: Female

DRUGS (2)
  1. EMGALITY [Suspect]
     Active Substance: GALCANEZUMAB-GNLM
     Indication: Migraine
     Dosage: OTHER FREQUENCY : EVERY 28 DAYS;?
     Route: 058
     Dates: start: 20240603
  2. EPIDIOLEX [Suspect]
     Active Substance: CANNABIDIOL

REACTIONS (1)
  - Ligament rupture [None]
